FAERS Safety Report 5643529-0 (Version None)
Quarter: 2008Q1

REPORT INFORMATION
  Report Type: 
  Country: None (occurrence: None)
  Receive Date: 20080228
  Receipt Date: 20080225
  Transmission Date: 20080703
  Serious: Yes (Hospitalization)
  Sender: FDA-Public Use
  Company Number: US-BOEHRINGER INGELHEIM GMBH, GERMANY-2008-BP-02736RO

PATIENT
  Age: 62 Year
  Sex: Male

DRUGS (9)
  1. METHOTREXATE [Suspect]
     Indication: RHEUMATOID ARTHRITIS
  2. PREDNISONE TAB [Suspect]
     Indication: RHEUMATOID ARTHRITIS
  3. INFLIXIMAB [Suspect]
     Indication: RHEUMATOID ARTHRITIS
  4. TRIMETHOPRIM + SULFAMETHOXAZOLE [Concomitant]
     Indication: EVIDENCE BASED TREATMENT
  5. VANCOMYCIN [Concomitant]
     Indication: EVIDENCE BASED TREATMENT
  6. CLINDAMYCIN HCL [Concomitant]
     Indication: EVIDENCE BASED TREATMENT
  7. AMPICILLIN AND SULBACTAM [Concomitant]
     Indication: EVIDENCE BASED TREATMENT
  8. AMPHOTERICIN B [Concomitant]
     Indication: FUNGAL INFECTION
  9. CORTICOSTEROIDS [Concomitant]

REACTIONS (1)
  - FUNGAL SKIN INFECTION [None]
